FAERS Safety Report 4544296-4 (Version None)
Quarter: 2004Q4

REPORT INFORMATION
  Report Type: 
  Country: None (occurrence: None)
  Receive Date: 20041230
  Receipt Date: 20041221
  Transmission Date: 20050328
  Serious: Yes (Hospitalization)
  Sender: FDA-Public Use
  Company Number: 800077

PATIENT
  Age: 62 Year
  Sex: Male
  Weight: 64 kg

DRUGS (15)
  1. EXTRANEAL [Suspect]
     Indication: PERITONEAL DIALYSIS
     Dosage: 2000 ML;INTRAPERITONEAL
     Route: 033
     Dates: start: 20030822
  2. DIANEAL [Concomitant]
  3. ROCALTROL [Concomitant]
  4. ZANTAC [Concomitant]
  5. CALCIUM CARBONATE [Concomitant]
  6. NORVASC [Concomitant]
  7. AVISHOT [Concomitant]
  8. NU-LOTAN [Concomitant]
  9. DEPAS [Concomitant]
  10. ALESION [Concomitant]
  11. WARFARIN SODIUM [Concomitant]
  12. PLETAL [Concomitant]
  13. LOXONIN [Concomitant]
  14. MARZULENE S [Concomitant]
  15. LIPLE [Concomitant]

REACTIONS (2)
  - INTERSTITIAL LUNG DISEASE [None]
  - SCLERODERMA [None]
